FAERS Safety Report 24533023 (Version 1)
Quarter: 2024Q4

REPORT INFORMATION
  Report Type: Spontaneous
  Country: US (occurrence: US)
  Receive Date: 20241022
  Receipt Date: 20241022
  Transmission Date: 20250115
  Serious: Yes (Hospitalization, Other)
  Sender: LUPIN
  Company Number: US-LUPIN PHARMACEUTICALS INC.-2024-10204

PATIENT
  Age: 70 Year
  Sex: Female

DRUGS (12)
  1. ATOVAQUONE [Suspect]
     Active Substance: ATOVAQUONE
     Indication: Babesiosis
     Dosage: 1500 MILLIGRAM, QD
     Route: 065
  2. AZITHROMYCIN [Suspect]
     Active Substance: AZITHROMYCIN
     Indication: Babesiosis
     Dosage: 500 MILLIGRAM, QD
     Route: 065
  3. QUININE SULFATE [Suspect]
     Active Substance: QUININE SULFATE
     Indication: Babesiosis
     Dosage: UNK
     Route: 065
  4. RITUXIMAB [Suspect]
     Active Substance: RITUXIMAB
     Indication: Rheumatoid arthritis
     Dosage: UNK
     Route: 065
  5. CLINDAMYCIN [Suspect]
     Active Substance: CLINDAMYCIN
     Indication: Babesiosis
     Dosage: 180 MG, QD
     Route: 065
  6. CLINDAMYCIN [Suspect]
     Active Substance: CLINDAMYCIN
     Dosage: 900 MG, QD
     Route: 065
  7. METHOTREXATE [Suspect]
     Active Substance: METHOTREXATE
     Indication: Rheumatoid arthritis
     Dosage: UNK
     Route: 065
  8. TAFENOQUINE [Suspect]
     Active Substance: TAFENOQUINE
     Indication: Babesiosis
     Dosage: 200 MG
     Route: 065
  9. TAFENOQUINE [Suspect]
     Active Substance: TAFENOQUINE
     Dosage: 200 MILLIGRAM
     Route: 065
  10. TAFENOQUINE [Suspect]
     Active Substance: TAFENOQUINE
     Dosage: 200 MILLIGRAM
     Route: 065
  11. ATOVAQUONE;PROGUANIL [Concomitant]
     Indication: Babesiosis
     Dosage: 500 MG, QD
     Route: 065
  12. ATOVAQUONE;PROGUANIL [Concomitant]
     Dosage: 200 MG, QD
     Route: 065

REACTIONS (4)
  - Drug resistance [Unknown]
  - Babesiosis [Recovering/Resolving]
  - Infection [Recovering/Resolving]
  - Off label use [Unknown]
